FAERS Safety Report 15173883 (Version 4)
Quarter: 2018Q4

REPORT INFORMATION
  Report Type: Report from Study
  Country: US (occurrence: US)
  Receive Date: 20180720
  Receipt Date: 20181017
  Transmission Date: 20190204
  Serious: No
  Sender: FDA-Public Use
  Company Number: US-AMGEN-USASL2018072281

PATIENT
  Age: 70 Year
  Sex: Female
  Weight: 55.78 kg

DRUGS (5)
  1. REPATHA [Suspect]
     Active Substance: EVOLOCUMAB
     Indication: HYPERCHOLESTEROLAEMIA
     Dosage: 140 MG/ML, Q2WK
     Route: 030
     Dates: start: 20180319
  2. REPATHA [Suspect]
     Active Substance: EVOLOCUMAB
     Indication: HYPERLIPIDAEMIA
  3. CLOBETASOL [Concomitant]
     Active Substance: CLOBETASOL
     Dosage: 0.05 %, UNK
     Route: 061
     Dates: start: 20180625
  4. BABY ASPIRIN [Concomitant]
     Active Substance: ASPIRIN
     Dosage: UNK
  5. ALBUTEROL SULFATE. [Concomitant]
     Active Substance: ALBUTEROL SULFATE
     Dosage: 2.5 MG/3ML (0.083 %), TID
     Route: 045
     Dates: start: 20171217

REACTIONS (9)
  - Arthritis [Unknown]
  - Migraine [Unknown]
  - Fatigue [Unknown]
  - Blood pressure increased [Recovering/Resolving]
  - Incorrect route of product administration [Unknown]
  - Rhinorrhoea [Recovered/Resolved]
  - Haematoma [Unknown]
  - Throat irritation [Recovered/Resolved]
  - Oropharyngeal pain [Recovered/Resolved]

NARRATIVE: CASE EVENT DATE: 2018
